FAERS Safety Report 17575201 (Version 2)
Quarter: 2020Q1

REPORT INFORMATION
  Report Type: Spontaneous
  Country: CA (occurrence: CA)
  Receive Date: 20200324
  Receipt Date: 20200326
  Transmission Date: 20200409
  Serious: Yes (Hospitalization)
  Sender: FDA-Public Use
  Company Number: CA-TEVA-2020-CA-1212233

PATIENT
  Age: 53 Year
  Sex: Male

DRUGS (1)
  1. SALBUTAMOL [Suspect]
     Active Substance: ALBUTEROL
     Indication: ASTHMA
     Route: 065

REACTIONS (5)
  - Wheezing [Unknown]
  - Asthma [Unknown]
  - Decreased activity [Unknown]
  - Respiratory disorder [Unknown]
  - Dyspnoea [Unknown]
